FAERS Safety Report 23445269 (Version 2)
Quarter: 2024Q2

REPORT INFORMATION
  Report Type: Report from Study
  Country: CN (occurrence: CN)
  Receive Date: 20240126
  Receipt Date: 20240425
  Transmission Date: 20240717
  Serious: Yes (Hospitalization)
  Sender: FDA-Public Use
  Company Number: CN-JNJFOC-20240146393

PATIENT
  Age: 79 Year
  Sex: Male
  Weight: 77 kg

DRUGS (9)
  1. ABIRATERONE ACETATE [Suspect]
     Active Substance: ABIRATERONE ACETATE
     Indication: Prostate cancer metastatic
     Route: 048
     Dates: start: 20221010, end: 20221222
  2. PREDNISOLONE [Suspect]
     Active Substance: PREDNISOLONE
     Indication: Prostate cancer metastatic
     Route: 048
     Dates: start: 20221010, end: 20221222
  3. ABEMACICLIB [Suspect]
     Active Substance: ABEMACICLIB
     Indication: Prostate cancer metastatic
     Route: 065
     Dates: start: 20221010, end: 20221222
  4. HERBALS [Concomitant]
     Active Substance: HERBALS
     Dates: start: 20221227, end: 20221230
  5. ISOSORBIDE DINITRATE [Concomitant]
     Active Substance: ISOSORBIDE DINITRATE
     Dates: start: 20221227, end: 20221230
  6. CEFOTAXIME [Concomitant]
     Active Substance: CEFOTAXIME SODIUM
     Dates: start: 20221227, end: 20221230
  7. MEXILETINE [Concomitant]
     Active Substance: MEXILETINE
  8. LIDOCAINE [Concomitant]
     Active Substance: LIDOCAINE
  9. NIFEDIPINE [Concomitant]
     Active Substance: NIFEDIPINE
     Dates: start: 2015

REACTIONS (2)
  - Pneumonia [Recovering/Resolving]
  - Coronary artery disease [Recovered/Resolved]

NARRATIVE: CASE EVENT DATE: 20221227
